FAERS Safety Report 6603052-3 (Version None)
Quarter: 2010Q1

REPORT INFORMATION
  Report Type: 
  Country: None (occurrence: None)
  Receive Date: 20100226
  Receipt Date: 20100216
  Transmission Date: 20100710
  Serious: Yes (Other)
  Sender: FDA-Public Use
  Company Number: PHHY2010IE09637

PATIENT
  Age: 19 Year
  Sex: Female

DRUGS (3)
  1. TOBI [Suspect]
  2. TOBI [Suspect]
  3. TOBRAMYCIN [Suspect]
     Route: 042

REACTIONS (3)
  - DEPRESSION [None]
  - HEADACHE [None]
  - STRESS [None]
